FAERS Safety Report 4293068-7 (Version None)
Quarter: 2004Q1

REPORT INFORMATION
  Report Type: 
  Country: None (occurrence: None)
  Receive Date: 20040210
  Receipt Date: 20021218
  Transmission Date: 20041129
  Serious: Yes (Life-Threatening, Hospitalization)
  Sender: FDA-Public Use
  Company Number: J081-002-001211

PATIENT
  Age: 82 Year
  Sex: Male

DRUGS (13)
  1. ARICEPT [Suspect]
     Indication: DEMENTIA ALZHEIMER'S TYPE
     Dosage: SEE IMAGE
     Route: 048
     Dates: start: 20000723, end: 20000723
  2. ARICEPT [Suspect]
     Indication: DEMENTIA ALZHEIMER'S TYPE
     Dosage: SEE IMAGE
     Route: 048
     Dates: start: 20020812, end: 20020912
  3. ARICEPT [Suspect]
     Indication: DEMENTIA ALZHEIMER'S TYPE
     Dosage: SEE IMAGE
     Route: 048
     Dates: start: 20020913, end: 20020913
  4. ARICEPT [Suspect]
     Indication: DEMENTIA ALZHEIMER'S TYPE
     Dosage: SEE IMAGE
     Route: 048
     Dates: start: 20020918, end: 20021113
  5. WARFARIN SODIUM [Concomitant]
  6. SIGMART (NICORANDIL) [Concomitant]
  7. EBRANTIL (URAPIDIL) [Concomitant]
  8. ONON (PRANLUKAST HYDRATE) [Concomitant]
  9. UNIPHYL [Concomitant]
  10. THEO-DUR [Concomitant]
  11. HARNAL (TAMSULOSIN HYDROCHLORIDE) [Concomitant]
  12. BUP-4 (PROPIVERINE HYDROCHLORIDE) [Concomitant]
  13. CERNILTON (CERNILTON_ [Concomitant]

REACTIONS (6)
  - AORTIC ANEURYSM [None]
  - DEPRESSED LEVEL OF CONSCIOUSNESS [None]
  - HYPOTENSION [None]
  - MALLORY-WEISS SYNDROME [None]
  - NASOPHARYNGITIS [None]
  - WHEELCHAIR USER [None]
